FAERS Safety Report 24587501 (Version 1)
Quarter: 2024Q4

REPORT INFORMATION
  Report Type: Spontaneous
  Country: CA (occurrence: CA)
  Receive Date: 20241107
  Receipt Date: 20241107
  Transmission Date: 20250115
  Serious: Yes (Life-Threatening, Hospitalization)
  Sender: ACCORD
  Company Number: None

PATIENT
  Age: 79 Year
  Sex: Female
  Weight: 90 kg

DRUGS (2)
  1. APIXABAN [Suspect]
     Active Substance: APIXABAN
     Indication: Atrial fibrillation
     Dosage: 2 EVERY 1 DAYS
  2. LATANOPROST [Concomitant]
     Active Substance: LATANOPROST
     Dosage: SOLUTION OPHTHALMIC

REACTIONS (3)
  - Asthenia [Unknown]
  - Facial paralysis [Unknown]
  - Haemorrhage [Unknown]
